FAERS Safety Report 5803006-0 (Version None)
Quarter: 2008Q2

REPORT INFORMATION
  Report Type: 
  Country: None (occurrence: None)
  Receive Date: 20080626
  Receipt Date: 20080612
  Transmission Date: 20081010
  Serious: Yes (Death)
  Sender: FDA-Public Use
  Company Number: THYM-1000654

PATIENT
  Age: 43 Year
  Sex: Male
  Weight: 57 kg

DRUGS (8)
  1. THYMOGLOBULIN [Suspect]
     Indication: KIDNEY TRANSPLANT REJECTION
     Dosage: 140 MG, QD, INTRAVENOUS, 70 MG, QD, INTRAVENOUS
     Route: 042
     Dates: start: 20080111, end: 20080112
  2. THYMOGLOBULIN [Suspect]
     Indication: KIDNEY TRANSPLANT REJECTION
     Dosage: 140 MG, QD, INTRAVENOUS, 70 MG, QD, INTRAVENOUS
     Route: 042
     Dates: start: 20080113, end: 20080113
  3. METOPROLOL TARTRATE [Concomitant]
  4. RAMIPRIL [Concomitant]
  5. OMEPRAZOLE [Concomitant]
  6. AMLODIPINE [Concomitant]
  7. CANDESARTAN CILEXETIL [Concomitant]
  8. INSULIN (INSULIN) [Concomitant]

REACTIONS (11)
  - ACTIVATED PARTIAL THROMBOPLASTIN TIME PROLONGED [None]
  - BRADYCARDIA [None]
  - CARDIAC FAILURE CONGESTIVE [None]
  - COLD SWEAT [None]
  - DEPRESSED LEVEL OF CONSCIOUSNESS [None]
  - DYSPHASIA [None]
  - ELECTROMECHANICAL DISSOCIATION [None]
  - HYPERTENSIVE HEART DISEASE [None]
  - MALAISE [None]
  - NASOPHARYNGITIS [None]
  - VENTRICULAR FAILURE [None]
